FAERS Safety Report 5699274-9 (Version None)
Quarter: 2008Q2

REPORT INFORMATION
  Report Type: 
  Country: None (occurrence: None)
  Receive Date: 20080404
  Receipt Date: 20080327
  Transmission Date: 20081010
  Serious: Yes (Other)
  Sender: FDA-Public Use
  Company Number: WAES 98110361

PATIENT
  Age: 55 Year
  Sex: Female

DRUGS (4)
  1. ZOCOR [Suspect]
     Indication: HYPERCHOLESTEROLAEMIA
     Dosage: PO;15 MG/PO; 5 MG/DAILY/PO
     Route: 048
     Dates: start: 19980501, end: 19981017
  2. ZOCOR [Suspect]
     Indication: HYPERCHOLESTEROLAEMIA
     Dosage: PO;15 MG/PO; 5 MG/DAILY/PO
     Route: 048
     Dates: end: 20010115
  3. REGLAN [Concomitant]
  4. ERYTHROMYCIN [Concomitant]

REACTIONS (11)
  - ANXIETY [None]
  - GASTRITIS [None]
  - HYPERSENSITIVITY [None]
  - HYPERVENTILATION [None]
  - IMPAIRED GASTRIC EMPTYING [None]
  - LUPUS-LIKE SYNDROME [None]
  - MALAISE [None]
  - NAUSEA [None]
  - PHARMACEUTICAL PRODUCT COMPLAINT [None]
  - TACHYCARDIA [None]
  - TINNITUS [None]
